FAERS Safety Report 18925619 (Version 1)
Quarter: 2021Q1

REPORT INFORMATION
  Report Type: Spontaneous
  Country: US (occurrence: US)
  Receive Date: 20210222
  Receipt Date: 20210222
  Transmission Date: 20210420
  Serious: No
  Sender: FDA-Public Use
  Company Number: US-ASTRAZENECA-2021A049120

PATIENT
  Sex: Female

DRUGS (1)
  1. SYMLIN [Suspect]
     Active Substance: PRAMLINTIDE ACETATE
     Indication: DIABETES MELLITUS
     Route: 058

REACTIONS (3)
  - Incorrect dose administered by device [Unknown]
  - Device mechanical issue [Unknown]
  - Injection site haemorrhage [Unknown]
